FAERS Safety Report 5414910-X (Version None)
Quarter: 2007Q3

REPORT INFORMATION
  Report Type: 
  Country: None (occurrence: None)
  Receive Date: 20070813
  Receipt Date: 20070724
  Transmission Date: 20080115
  Serious: Yes (Hospitalization)
  Sender: FDA-Public Use
  Company Number: 2007RR-08962

PATIENT
  Age: 21 Year
  Sex: Female
  Weight: 42 kg

DRUGS (4)
  1. GABAPENTIN [Suspect]
     Indication: PAIN
     Dosage: 300 MG, TID, ORAL; 300 MG, Q3H, ORAL; 300 MG, PRN, ORAL
     Route: 048
     Dates: start: 20040701, end: 20050701
  2. GABAPENTIN [Suspect]
     Indication: PAIN
     Dosage: 300 MG, TID, ORAL; 300 MG, Q3H, ORAL; 300 MG, PRN, ORAL
     Route: 048
     Dates: start: 20050701, end: 20060307
  3. GABAPENTIN [Suspect]
     Indication: PAIN
     Dosage: 300 MG, TID, ORAL; 300 MG, Q3H, ORAL; 300 MG, PRN, ORAL
     Route: 048
     Dates: start: 20060308
  4. MEFENAMIC ACID [Concomitant]

REACTIONS (7)
  - CATATONIA [None]
  - DELUSION [None]
  - HALLUCINATION, AUDITORY [None]
  - IDEAS OF REFERENCE [None]
  - PARANOIA [None]
  - STEREOTYPY [None]
  - STUPOR [None]
